FAERS Safety Report 23159899 (Version 1)
Quarter: 2023Q4

REPORT INFORMATION
  Report Type: Spontaneous
  Country: US (occurrence: US)
  Receive Date: 20231108
  Receipt Date: 20231108
  Transmission Date: 20240109
  Serious: Yes (Other)
  Sender: FDA-Public Use
  Company Number: US-MLMSERVICE-20231025-4622179-1

PATIENT
  Age: 77 Year
  Sex: Female
  Weight: 57.5 kg

DRUGS (10)
  1. SINEMET [Suspect]
     Active Substance: CARBIDOPA\LEVODOPA
     Indication: Parkinson^s disease
     Dosage: 5X DAILY
     Route: 048
     Dates: start: 2013
  2. RYTARY [Suspect]
     Active Substance: CARBIDOPA\LEVODOPA
     Indication: Parkinson^s disease
     Dosage: 2 CAPSULES 4X DAILY
  3. AZILECT [Suspect]
     Active Substance: RASAGILINE MESYLATE
     Indication: Parkinson^s disease
     Dosage: (1 MG) DAILY
  4. COMTAN [Suspect]
     Active Substance: ENTACAPONE
     Indication: Parkinson^s disease
     Dosage: (200 MG) 5X DAILY
  5. NEUPRO [Suspect]
     Active Substance: ROTIGOTINE
     Indication: Parkinson^s disease
     Dosage: (4 MG) DAILY
     Route: 062
  6. REQUIP [Suspect]
     Active Substance: ROPINIROLE HYDROCHLORIDE
     Indication: Parkinson^s disease
     Dosage: (8 MG) DAILY
  7. AMBIEN [Suspect]
     Active Substance: ZOLPIDEM TARTRATE
     Indication: Parkinson^s disease
     Dosage: (10 MG) NIGHTLY
  8. MELATONIN [Suspect]
     Active Substance: MELATONIN
     Indication: Parkinson^s disease
     Dosage: (15 MG) NIGHTLY
  9. GABAPENTIN [Suspect]
     Active Substance: GABAPENTIN
     Indication: Parkinson^s disease
     Dosage: (300 MG) PRN
  10. TYLENOL [Suspect]
     Active Substance: ACETAMINOPHEN
     Indication: Parkinson^s disease
     Dosage: 1000 MILLIGRAM, PRN

REACTIONS (3)
  - Parkinson^s disease [Unknown]
  - On and off phenomenon [Unknown]
  - Drug ineffective [Unknown]
